FAERS Safety Report 17760206 (Version 1)
Quarter: 2020Q2

REPORT INFORMATION
  Report Type: Spontaneous
  Country: US (occurrence: US)
  Receive Date: 20200507
  Receipt Date: 20200507
  Transmission Date: 20200714
  Serious: Yes (Death)
  Sender: FDA-Public Use
  Company Number: None

PATIENT
  Sex: Female

DRUGS (15)
  1. FOLIC ACID. [Concomitant]
     Active Substance: FOLIC ACID
  2. MS CONTIN [Concomitant]
     Active Substance: MORPHINE SULFATE
  3. SPIRONOLACT [Concomitant]
     Active Substance: SPIRONOLACTONE
  4. COUMADIN [Concomitant]
     Active Substance: WARFARIN SODIUM
  5. LIPITOR [Concomitant]
     Active Substance: ATORVASTATIN CALCIUM
  6. SILDENAFIL 20MG [Suspect]
     Active Substance: SILDENAFIL
     Indication: PULMONARY ARTERIAL HYPERTENSION
     Route: 048
     Dates: start: 20180202
  7. FUROSEMIDE. [Concomitant]
     Active Substance: FUROSEMIDE
  8. ATENOLOL. [Concomitant]
     Active Substance: ATENOLOL
  9. SYMBICORT [Concomitant]
     Active Substance: BUDESONIDE\FORMOTEROL FUMARATE DIHYDRATE
  10. DOXEPIN HCL [Concomitant]
     Active Substance: DOXEPIN HYDROCHLORIDE
  11. PROAIR HFA AER [Concomitant]
  12. INCRUSE ELPT INH [Concomitant]
  13. OXYCODONE [Concomitant]
     Active Substance: OXYCODONE
  14. AZATHIOPRINE. [Concomitant]
     Active Substance: AZATHIOPRINE
  15. ASPIRIN. [Concomitant]
     Active Substance: ASPIRIN

REACTIONS (1)
  - Death [None]
